FAERS Safety Report 10349689 (Version 1)
Quarter: 2014Q3

REPORT INFORMATION
  Report Type: Spontaneous
  Country: US (occurrence: US)
  Receive Date: 20140730
  Receipt Date: 20140730
  Transmission Date: 20150326
  Serious: Yes (Other)
  Sender: FDA-Public Use
  Company Number: US-AMGEN-USASP2014055194

PATIENT
  Age: 60 Year
  Sex: Female

DRUGS (6)
  1. FISH OIL                           /00492901/ [Concomitant]
     Indication: BLOOD TRIGLYCERIDES INCREASED
     Dosage: UNK
     Dates: start: 2006
  2. METOPROLOL [Concomitant]
     Active Substance: METOPROLOL
  3. CALTRATE                           /00944201/ [Concomitant]
     Dosage: UNK
     Dates: start: 2004
  4. VITAMIN D                          /00107901/ [Concomitant]
     Active Substance: ERGOCALCIFEROL
     Dosage: UNK
     Dates: start: 2004
  5. PROLIA [Suspect]
     Active Substance: DENOSUMAB
     Indication: OSTEOPOROSIS POSTMENOPAUSAL
     Dosage: 60 MG, Q6MO
     Route: 058
     Dates: start: 20130814
  6. EXEMESTANE. [Concomitant]
     Active Substance: EXEMESTANE
     Dosage: UNK
     Dates: start: 2011

REACTIONS (7)
  - Anxiety [Recovered/Resolved]
  - Palpitations [Recovered/Resolved]
  - Hypoaesthesia [Recovered/Resolved]
  - Dry skin [Not Recovered/Not Resolved]
  - Thyroid function test abnormal [Unknown]
  - Bone pain [Recovered/Resolved]
  - Paraesthesia [Not Recovered/Not Resolved]
